FAERS Safety Report 16297260 (Version 2)
Quarter: 2019Q2

REPORT INFORMATION
  Report Type: Report from Study
  Country: DE (occurrence: DE)
  Receive Date: 20190510
  Receipt Date: 20190520
  Transmission Date: 20190711
  Serious: Yes (Other)
  Sender: FDA-Public Use
  Company Number: DE-BRISTOL-MYERS SQUIBB COMPANY-BMS-2018-036245

PATIENT
  Age: 71 Year
  Sex: Male

DRUGS (9)
  1. NIVOLUMAB [Suspect]
     Active Substance: NIVOLUMAB
     Indication: MALIGNANT MELANOMA
     Dosage: 78 MILLIGRAM (1 MG / KG), Q2WK
     Route: 042
     Dates: start: 20171006, end: 20171211
  2. NIVOLUMAB [Suspect]
     Active Substance: NIVOLUMAB
     Indication: PRODUCT USED FOR UNKNOWN INDICATION
     Dosage: 245.4 MILLIGRAM
     Route: 042
     Dates: start: 20180118, end: 20180202
  3. NIVOLUMAB [Suspect]
     Active Substance: NIVOLUMAB
     Indication: PRODUCT USED FOR UNKNOWN INDICATION
     Dosage: 480 MILLIGRAM, Q4WK
     Route: 042
     Dates: start: 20180522
  4. MOMETASON FUROAAT [Concomitant]
     Indication: PRODUCT USED FOR UNKNOWN INDICATION
     Dosage: UNK
     Route: 065
  5. FLUOROURACIL. [Concomitant]
     Active Substance: FLUOROURACIL
     Indication: PRODUCT USED FOR UNKNOWN INDICATION
     Dosage: UNK
     Route: 058
     Dates: start: 20181211, end: 20190108
  6. METRONIDAZOLE. [Concomitant]
     Active Substance: METRONIDAZOLE
     Indication: PRODUCT USED FOR UNKNOWN INDICATION
     Dosage: UNK
     Route: 065
  7. CALCIUM CARBONATE. [Concomitant]
     Active Substance: CALCIUM CARBONATE
     Indication: PRODUCT USED FOR UNKNOWN INDICATION
     Dosage: UNK
     Route: 065
  8. GLYCEROL [Concomitant]
     Active Substance: GLYCERIN
     Indication: PRODUCT USED FOR UNKNOWN INDICATION
     Dosage: UNK
     Route: 065
  9. IPILIMUMAB [Suspect]
     Active Substance: IPILIMUMAB
     Indication: MALIGNANT MELANOMA
     Dosage: 234 MG (3 MG / KG), Q3WK
     Route: 042
     Dates: start: 20171006, end: 20171211

REACTIONS (19)
  - Dry throat [Recovered/Resolved]
  - Dysphagia [Recovered/Resolved]
  - Dry mouth [Not Recovered/Not Resolved]
  - Rhinorrhoea [Recovered/Resolved]
  - Hyperthyroidism [Recovered/Resolved]
  - Lipase increased [Recovering/Resolving]
  - Fatigue [Recovering/Resolving]
  - Intracranial tumour haemorrhage [Recovering/Resolving]
  - Radiation skin injury [Recovering/Resolving]
  - Toothache [Recovered/Resolved]
  - Vitiligo [Not Recovered/Not Resolved]
  - Musculoskeletal chest pain [Recovered/Resolved]
  - Oral dysaesthesia [Recovering/Resolving]
  - Malignant neoplasm progression [Recovering/Resolving]
  - Dyspnoea [Recovered/Resolved]
  - Erythematotelangiectatic rosacea [Recovered/Resolved]
  - Oropharyngeal pain [Recovered/Resolved]
  - Pain [Unknown]
  - Arthritis [Unknown]

NARRATIVE: CASE EVENT DATE: 20180116
